FAERS Safety Report 6019442-6 (Version None)
Quarter: 2008Q4

REPORT INFORMATION
  Report Type: 
  Country: None (occurrence: None)
  Receive Date: 20081224
  Receipt Date: 20081215
  Transmission Date: 20090506
  Serious: Yes (Other)
  Sender: FDA-Public Use
  Company Number: AU-BRISTOL-MYERS SQUIBB COMPANY-14451389

PATIENT
  Age: 51 Year
  Sex: Male

DRUGS (2)
  1. ETOPOSIDE [Suspect]
     Indication: SMALL CELL LUNG CANCER STAGE UNSPECIFIED
     Dosage: CYC1:30SEP-02OCT08,CYC2: 22OCT-24OCT08,CYC3: 12NOV-14NOV08,CYC4: 03DEC-05DEC08.DOSE 170MGS DAY 1-3
     Route: 042
     Dates: start: 20080930, end: 20080930
  2. CARBOPLATIN [Concomitant]
     Indication: LUNG NEOPLASM MALIGNANT

REACTIONS (1)
  - MEDICATION ERROR [None]
